FAERS Safety Report 20769792 (Version 2)
Quarter: 2022Q3

REPORT INFORMATION
  Report Type: Report from Study
  Country: US (occurrence: US)
  Receive Date: 20220429
  Receipt Date: 20220715
  Transmission Date: 20221027
  Serious: Yes (Hospitalization)
  Sender: FDA-Public Use
  Company Number: US-JNJFOC-20220445151

PATIENT
  Age: 51 Year
  Sex: Female

DRUGS (2)
  1. SPRAVATO [Suspect]
     Active Substance: ESKETAMINE
     Indication: Depression
     Dosage: ^56 MG, 1 TOTAL DOSE^
     Dates: start: 20220420, end: 20220420
  2. TRAZODONE [Concomitant]
     Active Substance: TRAZODONE HYDROCHLORIDE
     Route: 065

REACTIONS (6)
  - Dyspnoea [Unknown]
  - Dysstasia [Unknown]
  - Hypoaesthesia [Unknown]
  - Feeling cold [Unknown]
  - Sedation [Unknown]
  - Dissociation [Unknown]

NARRATIVE: CASE EVENT DATE: 20220420
